FAERS Safety Report 4488855-6 (Version None)
Quarter: 2004Q4

REPORT INFORMATION
  Report Type: 
  Country: None (occurrence: None)
  Receive Date: 20041029
  Receipt Date: 20041001
  Transmission Date: 20050328
  Serious: Yes (Hospitalization)
  Sender: FDA-Public Use
  Company Number: NZ-MERCK-0410NZL00046

PATIENT
  Age: 53 Year
  Sex: Female

DRUGS (6)
  1. VIOXX [Suspect]
     Indication: RHEUMATOID ARTHRITIS
     Route: 048
     Dates: start: 20020301, end: 20041001
  2. CODEINE [Concomitant]
     Indication: PAIN
     Route: 048
     Dates: start: 20010101
  3. LORATADINE [Concomitant]
     Indication: SEASONAL ALLERGY
     Route: 048
  4. FERROUS SULFATE [Concomitant]
     Indication: ANAEMIA
     Route: 048
  5. DOXYCYCLINE [Concomitant]
     Indication: PHARYNGOLARYNGEAL PAIN
     Route: 048
  6. DOXYCYCLINE [Concomitant]
     Indication: SINUS DISORDER
     Route: 048

REACTIONS (4)
  - CHEST PAIN [None]
  - DYSPNOEA [None]
  - HEART RATE IRREGULAR [None]
  - PALPITATIONS [None]
